FAERS Safety Report 7076307-9 (Version None)
Quarter: 2010Q4

REPORT INFORMATION
  Report Type: 
  Country: None (occurrence: None)
  Receive Date: 20101101
  Receipt Date: 20100929
  Transmission Date: 20110411
  Serious: No
  Sender: FDA-Public Use
  Company Number: US-BAYER-201035400NA

PATIENT
  Sex: Female

DRUGS (2)
  1. BETASERON [Suspect]
     Dosage: AS USED: 8 MIU
     Route: 058
  2. BETASERON [Suspect]
     Dosage: AS USED: 6 MIU
     Route: 058

REACTIONS (1)
  - MENTAL STATUS CHANGES [None]
